FAERS Safety Report 20465447 (Version 1)
Quarter: 2022Q1

REPORT INFORMATION
  Report Type: Spontaneous
  Country: GB (occurrence: GB)
  Receive Date: 20220212
  Receipt Date: 20220212
  Transmission Date: 20220423
  Serious: Yes (Hospitalization)
  Sender: FDA-Public Use
  Company Number: None

PATIENT
  Age: 52 Year
  Sex: Female

DRUGS (13)
  1. DOCETAXEL [Suspect]
     Active Substance: DOCETAXEL
     Indication: HER2 positive breast cancer
     Dosage: 120 MG, Q3W
     Route: 042
     Dates: start: 20180215
  2. PERTUZUMAB [Suspect]
     Active Substance: PERTUZUMAB
     Indication: HER2 positive breast cancer
     Dosage: 840 MG/KG, Q3W
     Route: 042
     Dates: start: 20180216, end: 20210409
  3. TRASTUZUMAB [Suspect]
     Active Substance: TRASTUZUMAB
     Indication: Breast cancer metastatic
     Dosage: UNK
     Route: 065
  4. ANADIN [Concomitant]
     Indication: Product used for unknown indication
     Dosage: 1000 MG (AS NEEDED)
     Route: 048
  5. DEXAMETHASONE [Concomitant]
     Active Substance: DEXAMETHASONE
     Indication: Product used for unknown indication
     Route: 048
     Dates: start: 20180218
  6. FILGRASTIM [Concomitant]
     Active Substance: FILGRASTIM
     Indication: Prophylaxis
     Dosage: 300 UG
     Route: 058
     Dates: start: 20180219
  7. RAMIPRIL [Concomitant]
     Active Substance: RAMIPRIL
     Indication: Ejection fraction decreased
     Dosage: 2.5 MG, QD
     Route: 048
     Dates: start: 20181113
  8. ACETAMINOPHEN [Concomitant]
     Active Substance: ACETAMINOPHEN
  9. AMOXICILLIN [Concomitant]
     Active Substance: AMOXICILLIN
  10. ZOPICLONE [Concomitant]
     Active Substance: ZOPICLONE
  11. CIPROFLOXACIN [Concomitant]
     Active Substance: CIPROFLOXACIN
  12. LOPERAMIDE [Concomitant]
     Active Substance: LOPERAMIDE
  13. METRONIDAZOLE [Concomitant]
     Active Substance: METRONIDAZOLE

REACTIONS (5)
  - Fatigue [Not Recovered/Not Resolved]
  - Pain in extremity [Recovered/Resolved]
  - Post procedural infection [Unknown]
  - Insomnia [Unknown]
  - Diarrhoea [Unknown]

NARRATIVE: CASE EVENT DATE: 20180327
